FAERS Safety Report 12241225 (Version 7)
Quarter: 2016Q2

REPORT INFORMATION
  Report Type: Report from Study
  Country: US (occurrence: US)
  Receive Date: 20160406
  Receipt Date: 20160627
  Transmission Date: 20160815
  Serious: Yes (Hospitalization, Other)
  Sender: FDA-Public Use
  Company Number: US-GILEAD-2016-0206841

PATIENT
  Age: 53 Year
  Sex: Female

DRUGS (3)
  1. ADCIRCA [Concomitant]
     Active Substance: TADALAFIL
  2. AMBRISENTAN [Suspect]
     Active Substance: AMBRISENTAN
     Indication: PRODUCT USED FOR UNKNOWN INDICATION
     Dosage: 10 MG, QD
     Route: 065
     Dates: start: 20150216
  3. REMODULIN [Concomitant]
     Active Substance: TREPROSTINIL

REACTIONS (16)
  - Dermatitis [Unknown]
  - Gastroenteritis viral [Unknown]
  - Nasal congestion [Unknown]
  - Ocular hyperaemia [Unknown]
  - Fatigue [Unknown]
  - Eye pruritus [Unknown]
  - Fall [Unknown]
  - Seasonal allergy [Unknown]
  - Joint injury [Unknown]
  - Feeling of body temperature change [Unknown]
  - Insomnia [Unknown]
  - Viral infection [Unknown]
  - Pneumonia [Unknown]
  - Diarrhoea [Unknown]
  - Cataract [Unknown]
  - Vomiting [Unknown]

NARRATIVE: CASE EVENT DATE: 20160614
